FAERS Safety Report 6841522-3 (Version None)
Quarter: 2010Q3

REPORT INFORMATION
  Report Type: 
  Country: None (occurrence: None)
  Receive Date: 20100714
  Receipt Date: 20070904
  Transmission Date: 20110219
  Serious: No
  Sender: FDA-Public Use
  Company Number: US-PFIZER INC-2007058280

PATIENT
  Sex: Female
  Weight: 62.7 kg

DRUGS (5)
  1. CHANTIX [Suspect]
     Indication: SMOKING CESSATION THERAPY
     Route: 048
     Dates: start: 20070701, end: 20070707
  2. VALSARTAN [Concomitant]
  3. LOTREL [Concomitant]
  4. LIPITOR [Concomitant]
  5. IBUPROFEN [Concomitant]

REACTIONS (6)
  - BLOOD PRESSURE INCREASED [None]
  - COUGH [None]
  - FEELING ABNORMAL [None]
  - HEADACHE [None]
  - SINUS HEADACHE [None]
  - THROAT IRRITATION [None]
